FAERS Safety Report 21668797 (Version 3)
Quarter: 2025Q3

REPORT INFORMATION
  Report Type: Report from Study
  Country: US (occurrence: US)
  Receive Date: 20221201
  Receipt Date: 20250710
  Transmission Date: 20251020
  Serious: Yes (Death, Other)
  Sender: JAZZ
  Company Number: US-GW PHARMA-2022-US-036682

PATIENT
  Age: 27 Year
  Sex: Male
  Weight: 99.955 kg

DRUGS (3)
  1. EPIDIOLEX [Suspect]
     Active Substance: CANNABIDIOL
     Indication: Lennox-Gastaut syndrome
     Dosage: 10 MILLILITER, BID
  2. VIMPAT [Concomitant]
     Active Substance: LACOSAMIDE
     Indication: Seizure
  3. XCOPRI [Concomitant]
     Active Substance: CENOBAMATE
     Indication: Seizure

REACTIONS (1)
  - Death [Fatal]

NARRATIVE: CASE EVENT DATE: 20221101
